FAERS Safety Report 7509294-7 (Version None)
Quarter: 2011Q2

REPORT INFORMATION
  Report Type: 
  Country: None (occurrence: None)
  Receive Date: 20110527
  Receipt Date: 20110519
  Transmission Date: 20111010
  Serious: Yes (Hospitalization)
  Sender: FDA-Public Use
  Company Number: FR-ROCHE-778532

PATIENT
  Sex: Female

DRUGS (2)
  1. METHOTREXATE [Suspect]
     Indication: JUVENILE ARTHRITIS
     Route: 048
     Dates: start: 20100924
  2. NAPROXEN [Suspect]
     Indication: JUVENILE ARTHRITIS
     Route: 048
     Dates: start: 20100903

REACTIONS (1)
  - PSOAS ABSCESS [None]
